FAERS Safety Report 12527632 (Version 1)
Quarter: 2016Q3

REPORT INFORMATION
  Report Type: Spontaneous
  Country: GB (occurrence: GB)
  Receive Date: 20160705
  Receipt Date: 20160705
  Transmission Date: 20161109
  Serious: Yes (Other)
  Sender: FDA-Public Use
  Company Number: GB-IPCA LABORATORIES LIMITED-IPC201606-000549

PATIENT
  Age: 37 Year
  Sex: Female

DRUGS (5)
  1. PROGESTOGEN [Concomitant]
     Indication: CONTRACEPTION
     Route: 048
  2. LEVONORGESTREL. [Concomitant]
     Active Substance: LEVONORGESTREL
  3. WARFARIN [Suspect]
     Active Substance: WARFARIN
     Indication: ANTICOAGULANT THERAPY
  4. NORETHISTERONE [Concomitant]
     Active Substance: NORETHINDRONE
  5. WARFARIN [Suspect]
     Active Substance: WARFARIN
     Indication: PROPHYLAXIS

REACTIONS (5)
  - Antiphospholipid syndrome [Recovered/Resolved]
  - Adrenal insufficiency [Recovered/Resolved]
  - Lupus endocarditis [Recovered/Resolved]
  - Systemic lupus erythematosus [Recovered/Resolved]
  - Menorrhagia [Recovered/Resolved]
